FAERS Safety Report 7799161-6 (Version None)
Quarter: 2011Q4

REPORT INFORMATION
  Report Type: 
  Country: None (occurrence: None)
  Receive Date: 20111006
  Receipt Date: 20111004
  Transmission Date: 20120403
  Serious: Yes (Other)
  Sender: FDA-Public Use
  Company Number: US-PFIZER INC-2011236949

PATIENT
  Age: 64 Year
  Sex: Female

DRUGS (1)
  1. LYRICA [Suspect]
     Indication: FIBROMYALGIA
     Dosage: UNK

REACTIONS (8)
  - EXERCISE TOLERANCE DECREASED [None]
  - WEIGHT DECREASED [None]
  - BALANCE DISORDER [None]
  - MEMORY IMPAIRMENT [None]
  - NOCTURIA [None]
  - WEIGHT INCREASED [None]
  - MOOD ALTERED [None]
  - ADVERSE EVENT [None]
